FAERS Safety Report 24193700 (Version 1)
Quarter: 2024Q3

REPORT INFORMATION
  Report Type: Spontaneous
  Country: BE (occurrence: BE)
  Receive Date: 20240809
  Receipt Date: 20240809
  Transmission Date: 20241017
  Serious: Yes (Death, Life-Threatening, Hospitalization, Other)
  Sender: ABBVIE
  Company Number: None

PATIENT

DRUGS (7)
  1. ESCITALOPRAM OXALATE [Suspect]
     Active Substance: ESCITALOPRAM OXALATE
     Indication: Product used for unknown indication
     Dosage: 1 032
     Route: 048
     Dates: start: 20240315, end: 20240402
  2. XANAX [Suspect]
     Active Substance: ALPRAZOLAM
     Indication: Anxiety
     Dosage: STRENGTH: 0.5MG (BREAKABLE TABLET)
     Route: 048
     Dates: start: 20240228, end: 20240307
  3. QUETIAPINE [Suspect]
     Active Substance: QUETIAPINE
     Indication: Product used for unknown indication
     Dosage: EVENING, STRENGTH: 25MG
     Route: 065
     Dates: start: 20240326, end: 20240402
  4. VALIUM [Suspect]
     Active Substance: DIAZEPAM
     Indication: Anxiety
     Dosage: 1 EVENING - 0.5 DURING DAY ON DEMAND (STRENGTH: 5MG)
     Route: 048
     Dates: start: 20240313, end: 20240402
  5. VALIUM [Suspect]
     Active Substance: DIAZEPAM
     Indication: Anxiety
     Dosage: 1 EVENING - 0.5 DURING DAY ON DEMAND (STRENGTH: 5MG)
     Route: 048
     Dates: start: 20240313, end: 20240402
  6. AMISULPRIDE [Suspect]
     Active Substance: AMISULPRIDE
     Indication: Product used for unknown indication
     Dosage: STRENGTH: 50 MG
     Route: 048
     Dates: start: 20240311, end: 20240312
  7. XANAX XR [Suspect]
     Active Substance: ALPRAZOLAM
     Indication: Product used for unknown indication
     Dosage: STRENGTH: 1MG (XANAX RETARD 1MG)
     Route: 048
     Dates: start: 20240307, end: 20240311

REACTIONS (10)
  - Completed suicide [Fatal]
  - Fatigue [Fatal]
  - Suicide attempt [Fatal]
  - Insomnia [Fatal]
  - Hallucination [Fatal]
  - Anxiety [Fatal]
  - Tetany [Fatal]
  - Suicidal ideation [Fatal]
  - Agitation [Fatal]
  - Muscular weakness [Fatal]

NARRATIVE: CASE EVENT DATE: 20240229
